FAERS Safety Report 15409677 (Version 4)
Quarter: 2018Q4

REPORT INFORMATION
  Report Type: Report from Study
  Country: JP (occurrence: JP)
  Receive Date: 20180920
  Receipt Date: 20181129
  Transmission Date: 20190204
  Serious: Yes (Other)
  Sender: FDA-Public Use
  Company Number: JP-GILEAD-2018-0362607AA

PATIENT
  Age: 80 Year
  Sex: Male
  Weight: 59.2 kg

DRUGS (11)
  1. AMINOLEBAN [Concomitant]
     Active Substance: AMINO ACIDS
     Indication: DISEASE COMPLICATION
     Dosage: UNK
     Route: 048
  2. LIVACT                             /00847901/ [Concomitant]
     Active Substance: ISOLEUCINE\LEUCINE\VALINE
     Indication: DISEASE COMPLICATION
     Dosage: UNK
     Route: 048
  3. PARIET [Concomitant]
     Active Substance: RABEPRAZOLE SODIUM
     Indication: DISEASE COMPLICATION
     Dosage: UNK
     Route: 048
  4. FUROSEMIDE. [Concomitant]
     Active Substance: FUROSEMIDE
     Indication: DISEASE COMPLICATION
     Dosage: UNK
     Route: 048
  5. URSODEOXYCHOLIC ACID [Concomitant]
     Active Substance: URSODIOL
     Indication: HEPATITIS B
     Dosage: UNK
     Route: 048
  6. LAGNOS [Concomitant]
     Indication: DISEASE COMPLICATION
     Dosage: UNK
     Route: 048
  7. TENOFOVIR ALAFENAMIDE [Suspect]
     Active Substance: TENOFOVIR ALAFENAMIDE
     Indication: HEPATITIS B
     Dosage: 1 DF/DAY
     Route: 048
     Dates: start: 20180222, end: 20180606
  8. TENOFOVIR ALAFENAMIDE [Suspect]
     Active Substance: TENOFOVIR ALAFENAMIDE
     Dosage: 0.5 DF/DAY
     Route: 048
     Dates: start: 20180607, end: 20180925
  9. K-SUPPLY [Concomitant]
     Active Substance: POTASSIUM CHLORIDE
     Indication: DISEASE COMPLICATION
     Dosage: UNK
     Route: 048
  10. SAMSCA [Concomitant]
     Active Substance: TOLVAPTAN
     Indication: DISEASE COMPLICATION
     Dosage: UNK
     Route: 048
  11. TENOFOVIR ALAFENAMIDE [Suspect]
     Active Substance: TENOFOVIR ALAFENAMIDE
     Dosage: 1 DF/DAY
     Route: 048
     Dates: start: 20180926

REACTIONS (4)
  - Off label use [Recovered/Resolved]
  - Renal disorder [Recovering/Resolving]
  - Urinary tract disorder [Recovered/Resolved]
  - Iron deficiency anaemia [Recovered/Resolved]

NARRATIVE: CASE EVENT DATE: 20180405
